FAERS Safety Report 24581053 (Version 3)
Quarter: 2025Q1

REPORT INFORMATION
  Report Type: Spontaneous
  Country: US (occurrence: US)
  Receive Date: 20241105
  Receipt Date: 20250123
  Transmission Date: 20250408
  Serious: No
  Sender: PFIZER
  Company Number: US-PFIZER INC-PV202400141896

PATIENT
  Age: 22 Year
  Sex: Female
  Weight: 47.63 kg

DRUGS (1)
  1. CLINDAMYCIN PHOSPHATE [Suspect]
     Active Substance: CLINDAMYCIN PHOSPHATE
     Indication: Acne
     Dosage: 60 G, 2X/DAY
     Route: 061
     Dates: start: 20240529, end: 20240711

REACTIONS (1)
  - Drug ineffective [Unknown]
